FAERS Safety Report 8401307-3 (Version None)
Quarter: 2012Q2

REPORT INFORMATION
  Report Type: 
  Country: None (occurrence: None)
  Receive Date: 20120530
  Receipt Date: 20120530
  Transmission Date: 20120825
  Serious: No
  Sender: FDA-Public Use
  Company Number: None

PATIENT
  Sex: Male
  Weight: 130 kg

DRUGS (2)
  1. OPANA ER [Suspect]
  2. OPANA ER [Suspect]
     Indication: SURGICAL FAILURE
     Dosage: 50MG 2X DAY

REACTIONS (4)
  - ABDOMINAL DISCOMFORT [None]
  - FLATULENCE [None]
  - DIARRHOEA [None]
  - UNEVALUABLE EVENT [None]
